FAERS Safety Report 5899243-X (Version None)
Quarter: 2008Q3

REPORT INFORMATION
  Report Type: 
  Country: None (occurrence: None)
  Receive Date: 20080925
  Receipt Date: 20080917
  Transmission Date: 20090109
  Serious: Yes (Other)
  Sender: FDA-Public Use
  Company Number: JP-GENENTECH-268100

PATIENT
  Age: 24 Year
  Sex: Female

DRUGS (3)
  1. AVASTIN [Suspect]
     Indication: CHOROIDAL NEOVASCULARISATION
     Dosage: 1 MG, UNK
     Route: 031
  2. TOPICAL ANESTHESIA (UNK INGREDIENTS) [Concomitant]
     Indication: PREMEDICATION
     Route: 061
  3. POVIDONE IODINE [Concomitant]
     Indication: INFECTION

REACTIONS (1)
  - MENORRHAGIA [None]
